FAERS Safety Report 13848821 (Version 2)
Quarter: 2017Q4

REPORT INFORMATION
  Report Type: Report from Study
  Country: US (occurrence: US)
  Receive Date: 20170809
  Receipt Date: 20171013
  Transmission Date: 20180320
  Serious: Yes (Hospitalization)
  Sender: FDA-Public Use
  Company Number: US-VIFOR (INTERNATIONAL) INC.-VIT-2017-08346

PATIENT
  Sex: Female
  Weight: 55.39 kg

DRUGS (3)
  1. LYRICA [Concomitant]
     Active Substance: PREGABALIN
  2. ELIQUIS [Concomitant]
     Active Substance: APIXABAN
  3. VELTASSA [Suspect]
     Active Substance: PATIROMER
     Indication: HYPERKALAEMIA
     Route: 048
     Dates: start: 20161014

REACTIONS (4)
  - Drug dose omission [Unknown]
  - Cardiovascular disorder [Unknown]
  - Angina pectoris [Unknown]
  - Thrombosis [Recovered/Resolved]
